FAERS Safety Report 14278141 (Version 1)
Quarter: 2017Q4

REPORT INFORMATION
  Report Type: Spontaneous
  Country: RU (occurrence: RU)
  Receive Date: 20171212
  Receipt Date: 20171212
  Transmission Date: 20180321
  Serious: Yes (Hospitalization, Other)
  Sender: FDA-Public Use
  Company Number: RU-ASTRAZENECA-2017SF25522

PATIENT
  Age: 69 Year
  Sex: Male
  Weight: 84 kg

DRUGS (6)
  1. OMEZ [Concomitant]
     Active Substance: OMEPRAZOLE
  2. SOTALEX [Concomitant]
     Active Substance: SOTALOL
  3. ASPIRIN. [Concomitant]
     Active Substance: ASPIRIN
  4. VEROSPIRON [Concomitant]
     Active Substance: SPIRONOLACTONE
  5. BRILINTA [Suspect]
     Active Substance: TICAGRELOR
     Indication: ANGINA UNSTABLE
     Route: 048
     Dates: start: 2014
  6. CRESTOR [Concomitant]
     Active Substance: ROSUVASTATIN CALCIUM

REACTIONS (3)
  - Product use issue [Unknown]
  - Vascular stent thrombosis [Unknown]
  - Off label use [Unknown]

NARRATIVE: CASE EVENT DATE: 201705
